FAERS Safety Report 12641926 (Version 2)
Quarter: 2016Q3

REPORT INFORMATION
  Report Type: Report from Study
  Country: BR (occurrence: BR)
  Receive Date: 20160810
  Receipt Date: 20160817
  Transmission Date: 20161109
  Serious: Yes (Other)
  Sender: FDA-Public Use
  Company Number: BR-JNJFOC-20160518603

PATIENT
  Sex: Female
  Weight: 63 kg

DRUGS (4)
  1. PREDNISONE. [Concomitant]
     Active Substance: PREDNISONE
     Route: 065
  2. REMICADE [Suspect]
     Active Substance: INFLIXIMAB
     Indication: RHEUMATOID ARTHRITIS
     Route: 042
     Dates: start: 2012, end: 20150108
  3. FOLIC ACID. [Concomitant]
     Active Substance: FOLIC ACID
     Route: 065
  4. METHOTREXATE. [Concomitant]
     Active Substance: METHOTREXATE
     Route: 065

REACTIONS (12)
  - Ear infection [Recovering/Resolving]
  - Off label use [Unknown]
  - Incorrect drug administration rate [Unknown]
  - Pharyngitis [Recovering/Resolving]
  - Nodule [Unknown]
  - Abdominal pain upper [Recovering/Resolving]
  - Asthenia [Not Recovered/Not Resolved]
  - Swelling [Recovering/Resolving]
  - Drug prescribing error [Unknown]
  - Weight decreased [Recovering/Resolving]
  - Diabetes mellitus [Unknown]
  - Joint swelling [Unknown]
